FAERS Safety Report 7720099-4 (Version None)
Quarter: 2011Q3

REPORT INFORMATION
  Report Type: 
  Country: None (occurrence: None)
  Receive Date: 20110824
  Receipt Date: 20110809
  Transmission Date: 20111222
  Serious: Yes (Other)
  Sender: FDA-Public Use
  Company Number: GB-1187405

PATIENT
  Age: 27 Year
  Sex: Male

DRUGS (4)
  1. LATANOPROST [Suspect]
     Dosage: (OPHTHALMIC)
     Route: 047
  2. TIMOLOL MALEATE [Suspect]
     Indication: INTRAOCULAR PRESSURE INCREASED
     Dosage: (OPHTHALMIC)
     Route: 047
  3. DORZOLAMIDE HYDROCHLORIDE [Suspect]
     Indication: INTRAOCULAR PRESSURE INCREASED
     Dosage: (OPHTHALMIC)
     Route: 047
  4. PILOCARPINE HCL [Suspect]
     Dosage: (OPHTHALMIC)
     Route: 047

REACTIONS (8)
  - INTRAOCULAR PRESSURE INCREASED [None]
  - UVEITIS [None]
  - DRUG INEFFECTIVE [None]
  - VISUAL FIELD DEFECT [None]
  - ANGLE CLOSURE GLAUCOMA [None]
  - HYPHAEMA [None]
  - FLAT ANTERIOR CHAMBER OF EYE [None]
  - POST PROCEDURAL COMPLICATION [None]
